FAERS Safety Report 9397063 (Version 1)
Quarter: 2013Q3

REPORT INFORMATION
  Report Type: Spontaneous
  Country: US (occurrence: US)
  Receive Date: 20130712
  Receipt Date: 20130712
  Transmission Date: 20140515
  Serious: Yes (Hospitalization, Other)
  Sender: FDA-Public Use
  Company Number: US-PFIZER INC-2013202517

PATIENT
  Age: 24 Year
  Sex: Female

DRUGS (2)
  1. CHANTIX [Suspect]
     Indication: TOBACCO ABUSE
     Dosage: UNK
     Dates: start: 20070215, end: 20090625
  2. CHANTIX [Suspect]
     Dosage: 1 MG, 2X/DAY
     Route: 048
     Dates: start: 20090413

REACTIONS (1)
  - Convulsion [Unknown]
